FAERS Safety Report 24007726 (Version 2)
Quarter: 2024Q3

REPORT INFORMATION
  Report Type: Report from Study
  Country: FR (occurrence: FR)
  Receive Date: 20240625
  Receipt Date: 20240926
  Transmission Date: 20241016
  Serious: Yes (Hospitalization, Other)
  Sender: TAKEDA
  Company Number: FR-TAKEDA-2024TUS061662

PATIENT
  Age: 66 Year
  Sex: Female

DRUGS (12)
  1. TEDUGLUTIDE [Suspect]
     Active Substance: TEDUGLUTIDE
     Indication: Short-bowel syndrome
     Dosage: 2.35 MILLIGRAM, QD
     Route: 042
     Dates: start: 20191022, end: 20210318
  2. TEDUGLUTIDE [Suspect]
     Active Substance: TEDUGLUTIDE
     Indication: Short-bowel syndrome
     Dosage: 2.35 MILLIGRAM, QD
     Route: 042
     Dates: start: 20191022, end: 20210318
  3. TEDUGLUTIDE [Suspect]
     Active Substance: TEDUGLUTIDE
     Indication: Short-bowel syndrome
     Dosage: 2.35 MILLIGRAM, QD
     Route: 042
     Dates: start: 20191022, end: 20210318
  4. TEDUGLUTIDE [Suspect]
     Active Substance: TEDUGLUTIDE
     Indication: Short-bowel syndrome
     Dosage: 2.35 MILLIGRAM, QD
     Route: 042
     Dates: start: 20191022, end: 20210318
  5. TEDUGLUTIDE [Suspect]
     Active Substance: TEDUGLUTIDE
     Dosage: 1.25 MILLIGRAM, QD
     Route: 042
     Dates: start: 20210319
  6. TEDUGLUTIDE [Suspect]
     Active Substance: TEDUGLUTIDE
     Dosage: 1.25 MILLIGRAM, QD
     Route: 042
     Dates: start: 20210319
  7. TEDUGLUTIDE [Suspect]
     Active Substance: TEDUGLUTIDE
     Dosage: 1.25 MILLIGRAM, QD
     Route: 042
     Dates: start: 20210319
  8. TEDUGLUTIDE [Suspect]
     Active Substance: TEDUGLUTIDE
     Dosage: 1.25 MILLIGRAM, QD
     Route: 042
     Dates: start: 20210319
  9. ALPRAZOLAM [Concomitant]
     Active Substance: ALPRAZOLAM
     Indication: Anxiety
     Dosage: 0.5 MILLIGRAM, BID
     Route: 048
     Dates: start: 20240618
  10. ERYTHROPOIETIN [Concomitant]
     Active Substance: ERYTHROPOIETIN
     Indication: Anaemia
     Dosage: 10000 INTERNATIONAL UNIT, 1/WEEK
     Route: 058
     Dates: start: 20240618
  11. ARIXTRA [Concomitant]
     Active Substance: FONDAPARINUX SODIUM
     Indication: Venous thrombosis
     Dosage: 7.5 MILLIGRAM, QD
     Route: 058
     Dates: start: 20201116
  12. LOPERAMIDE [Concomitant]
     Active Substance: LOPERAMIDE
     Indication: Short-bowel syndrome
     Dosage: 2 DOSAGE FORM, QID
     Route: 048
     Dates: start: 2017

REACTIONS (2)
  - Chronic kidney disease [Recovered/Resolved]
  - Wrist fracture [Recovered/Resolved]

NARRATIVE: CASE EVENT DATE: 20240511
